FAERS Safety Report 5484366-X (Version None)
Quarter: 2007Q4

REPORT INFORMATION
  Report Type: 
  Country: None (occurrence: None)
  Receive Date: 20071009
  Receipt Date: 20070914
  Transmission Date: 20080405
  Serious: Yes (Other)
  Sender: FDA-Public Use
  Company Number: ENT 2007-0160

PATIENT
  Age: 60 Year
  Sex: Female

DRUGS (6)
  1. COMTAN [Suspect]
     Indication: PARKINSON'S DISEASE
     Dosage: 300 MG (100 MG, 3 IN 1 D) ORAL; 400 MG (100 MG, 4 IN 1 D) ORAL
     Route: 048
     Dates: start: 20070611, end: 20070708
  2. COMTAN [Suspect]
     Indication: PARKINSON'S DISEASE
     Dosage: 300 MG (100 MG, 3 IN 1 D) ORAL; 400 MG (100 MG, 4 IN 1 D) ORAL
     Route: 048
     Dates: start: 20070709
  3. PERMAX [Suspect]
     Dosage: 2250 UG/D ORAL
     Route: 048
     Dates: start: 20010612
  4. MENESIT [Suspect]
     Dosage: 600 MG (100 MG, 6 IN 1 D) ORAL
     Route: 048
     Dates: start: 19990601
  5. DEPAS [Concomitant]
  6. SYMMETREL [Concomitant]

REACTIONS (3)
  - DRUG INTERACTION POTENTIATION [None]
  - FALL [None]
  - SUDDEN ONSET OF SLEEP [None]
